FAERS Safety Report 14706025 (Version 1)
Quarter: 2018Q2

REPORT INFORMATION
  Report Type: Spontaneous
  Country: US (occurrence: US)
  Receive Date: 20180402
  Receipt Date: 20180402
  Transmission Date: 20180711
  Serious: No
  Sender: FDA-Public Use
  Company Number: US-MYLANLABS-2018M1016318

PATIENT
  Sex: Female

DRUGS (3)
  1. AMITRIPTYLINE [Suspect]
     Active Substance: AMITRIPTYLINE
     Dosage: UNK
     Dates: start: 20180221
  2. AMITRIPTYLINE [Suspect]
     Active Substance: AMITRIPTYLINE
     Dosage: UNK
     Dates: start: 20180220
  3. AMITRIPTYLINE [Suspect]
     Active Substance: AMITRIPTYLINE
     Indication: PRODUCT USED FOR UNKNOWN INDICATION
     Dosage: UNK
     Dates: start: 20180216

REACTIONS (5)
  - Vomiting [Unknown]
  - Feeling of body temperature change [Unknown]
  - Balance disorder [Unknown]
  - Hyperhidrosis [Unknown]
  - Migraine [Unknown]

NARRATIVE: CASE EVENT DATE: 201802
